FAERS Safety Report 14262799 (Version 1)
Quarter: 2017Q4

REPORT INFORMATION
  Report Type: Spontaneous
  Country: None (occurrence: ES)
  Receive Date: 20171208
  Receipt Date: 20171208
  Transmission Date: 20180321
  Serious: Yes (Other)
  Sender: FDA-Public Use
  Company Number: ES-JAZZ-2017-ES-016385

PATIENT
  Age: 14 Year
  Sex: Male

DRUGS (2)
  1. DEFITELIO [Suspect]
     Active Substance: DEFIBROTIDE SODIUM
     Indication: VENOOCCLUSIVE LIVER DISEASE
     Dosage: 1960 MG, QD
     Route: 042
     Dates: start: 20170718, end: 20170809
  2. HEPARINA SODICA [Suspect]
     Active Substance: HEPARIN SODIUM
     Indication: PROPHYLAXIS
     Dosage: 7800 IU, QD
     Route: 042
     Dates: start: 20170703, end: 20170718

REACTIONS (3)
  - Conjunctival haemorrhage [Recovered/Resolved]
  - Petechiae [Recovered/Resolved]
  - Periorbital haematoma [Recovered/Resolved]

NARRATIVE: CASE EVENT DATE: 20170719
